FAERS Safety Report 5849507-0 (Version None)
Quarter: 2008Q3

REPORT INFORMATION
  Report Type: 
  Country: None (occurrence: None)
  Receive Date: 20080819
  Receipt Date: 20080811
  Transmission Date: 20090109
  Serious: Yes (Other)
  Sender: FDA-Public Use
  Company Number: A0726850A

PATIENT
  Age: 44 Year
  Sex: Male

DRUGS (3)
  1. TAGAMET [Suspect]
     Route: 065
  2. CLOMIPRAMINE HCL [Suspect]
     Indication: OBSESSIVE-COMPULSIVE DISORDER
  3. OLANZAPINE [Suspect]

REACTIONS (9)
  - DRUG INTERACTION [None]
  - HALLUCINATION, VISUAL [None]
  - INSOMNIA [None]
  - OVERDOSE [None]
  - PANIC ATTACK [None]
  - POST-TRAUMATIC STRESS DISORDER [None]
  - PSYCHOTIC DISORDER [None]
  - REACTIVE PSYCHOSIS [None]
  - STRESS [None]
